FAERS Safety Report 19374906 (Version 1)
Quarter: 2021Q2

REPORT INFORMATION
  Report Type: Report from Study
  Country: US (occurrence: US)
  Receive Date: 20210604
  Receipt Date: 20210604
  Transmission Date: 20210717
  Serious: Yes (Other)
  Sender: FDA-Public Use
  Company Number: US-TAKEDA-2021TUS032741

PATIENT
  Age: 47 Year
  Sex: Female

DRUGS (13)
  1. TEDUGLUTIDE [Suspect]
     Active Substance: TEDUGLUTIDE
     Indication: SHORT-BOWEL SYNDROME
     Dosage: 0.26 MILLILITER, QD
     Route: 050
     Dates: start: 20210510
  2. TEDUGLUTIDE [Suspect]
     Active Substance: TEDUGLUTIDE
     Dosage: 0.26 MILLILITER, QD
     Route: 050
     Dates: start: 20210510, end: 20210525
  3. TEDUGLUTIDE [Suspect]
     Active Substance: TEDUGLUTIDE
     Dosage: 2.6 MILLIGRAM
     Route: 058
     Dates: start: 20210507
  4. TEDUGLUTIDE [Suspect]
     Active Substance: TEDUGLUTIDE
     Indication: SHORT-BOWEL SYNDROME
     Dosage: 0.26 MILLILITER, QD
     Route: 050
     Dates: start: 20210510
  5. TEDUGLUTIDE [Suspect]
     Active Substance: TEDUGLUTIDE
     Dosage: 2.6 MILLIGRAM
     Route: 058
     Dates: start: 20210507
  6. TPN [AMINO ACIDS NOS;CARBOHYDRATES NOS;MINERALS NOS;VITAMINS NOS] [Concomitant]
     Active Substance: AMINO ACIDS\CARBOHYDRATES\MINERALS\VITAMINS
     Indication: PRODUCT USED FOR UNKNOWN INDICATION
     Route: 065
  7. TEDUGLUTIDE [Suspect]
     Active Substance: TEDUGLUTIDE
     Dosage: 0.26 MILLILITER, QD
     Route: 050
     Dates: start: 20210510, end: 20210525
  8. TEDUGLUTIDE [Suspect]
     Active Substance: TEDUGLUTIDE
     Indication: SHORT-BOWEL SYNDROME
     Dosage: 0.26 MILLILITER, QD
     Route: 050
     Dates: start: 20210510
  9. TEDUGLUTIDE [Suspect]
     Active Substance: TEDUGLUTIDE
     Indication: SHORT-BOWEL SYNDROME
     Dosage: 0.26 MILLILITER, QD
     Route: 050
     Dates: start: 20210510
  10. TEDUGLUTIDE [Suspect]
     Active Substance: TEDUGLUTIDE
     Dosage: 0.26 MILLILITER, QD
     Route: 050
     Dates: start: 20210510, end: 20210525
  11. TEDUGLUTIDE [Suspect]
     Active Substance: TEDUGLUTIDE
     Dosage: 0.26 MILLILITER, QD
     Route: 050
     Dates: start: 20210510, end: 20210525
  12. TEDUGLUTIDE [Suspect]
     Active Substance: TEDUGLUTIDE
     Dosage: 2.6 MILLIGRAM
     Route: 058
     Dates: start: 20210507
  13. TEDUGLUTIDE [Suspect]
     Active Substance: TEDUGLUTIDE
     Dosage: 2.6 MILLIGRAM
     Route: 058
     Dates: start: 20210507

REACTIONS (9)
  - Fluid overload [Recovered/Resolved]
  - Joint swelling [Unknown]
  - Headache [Unknown]
  - Abdominal distension [Unknown]
  - Swelling [Unknown]
  - Small intestinal obstruction [Recovered/Resolved]
  - Peripheral swelling [Unknown]
  - Therapy interrupted [Not Recovered/Not Resolved]
  - Gastrointestinal pain [Unknown]

NARRATIVE: CASE EVENT DATE: 20210513
